FAERS Safety Report 10691134 (Version 1)
Quarter: 2015Q1

REPORT INFORMATION
  Report Type: Spontaneous
  Country: SE (occurrence: SE)
  Receive Date: 20150105
  Receipt Date: 20150105
  Transmission Date: 20150720
  Serious: Yes (Hospitalization)
  Sender: FDA-Public Use
  Company Number: SE-PFIZER INC-2015000889

PATIENT
  Age: 54 Year
  Sex: Male

DRUGS (6)
  1. JANUMET [Suspect]
     Active Substance: METFORMIN HYDROCHLORIDE\SITAGLIPTIN PHOSPHATE
     Dosage: 10 PIECES OF JANUMET 50 MG/1000 MG (METFORMIN+SITAGLIPTIN)
     Route: 048
     Dates: start: 20131220, end: 20131220
  2. SIMVASTATIN. [Suspect]
     Active Substance: SIMVASTATIN
     Dosage: 10 PIECES SIMVASTATIN 80 MG
     Route: 048
     Dates: start: 20131220, end: 20131220
  3. ENALAPRIL [Suspect]
     Active Substance: ENALAPRIL
     Dosage: 10 PIECES ENALAPRIL 10 MG
     Route: 048
     Dates: start: 20131220, end: 20131220
  4. SERTRALINE HCL [Suspect]
     Active Substance: SERTRALINE HYDROCHLORIDE
     Dosage: 10 PIECES SERTRALIN 100 MG
     Route: 048
     Dates: start: 20131220, end: 20131220
  5. TROMBYL [Suspect]
     Active Substance: ASPIRIN
     Dosage: 10 PIECES TROMBYL 75 MG
     Route: 048
     Dates: start: 20131220, end: 20131220
  6. METOPROLOL TARTRATE. [Suspect]
     Active Substance: METOPROLOL TARTRATE
     Dosage: 10 PIECES METOPROLOL 100 MG
     Route: 048
     Dates: start: 20131220, end: 20131220

REACTIONS (1)
  - Toxicity to various agents [Recovered/Resolved]

NARRATIVE: CASE EVENT DATE: 20131220
